FAERS Safety Report 8160090-X (Version None)
Quarter: 2012Q1

REPORT INFORMATION
  Report Type: 
  Country: None (occurrence: None)
  Receive Date: 20120223
  Receipt Date: 20120221
  Transmission Date: 20120608
  Serious: No
  Sender: FDA-Public Use
  Company Number: US-PFIZER INC-2012039586

PATIENT
  Sex: Female

DRUGS (3)
  1. ZOLOFT [Suspect]
     Dosage: 50 MG, UNK
  2. LIPITOR [Suspect]
     Dosage: UNK
  3. DETROL LA [Suspect]
     Dosage: UNK

REACTIONS (1)
  - DEPRESSION [None]
